FAERS Safety Report 18019622 (Version 1)
Quarter: 2020Q3

REPORT INFORMATION
  Report Type: Spontaneous
  Country: US (occurrence: US)
  Receive Date: 20200714
  Receipt Date: 20200714
  Transmission Date: 20201103
  Serious: No
  Sender: FDA-Public Use
  Company Number: None

PATIENT
  Age: 87 Year
  Sex: Female
  Weight: 50.85 kg

DRUGS (6)
  1. VITAMIN D [Concomitant]
     Active Substance: VITAMIN D NOS
  2. TRIAMCINOLONE 0.1% CREAM [Suspect]
     Active Substance: TRIAMCINOLONE ACETONIDE
     Indication: RASH
  3. CALCIUM [Concomitant]
     Active Substance: CALCIUM
  4. LOSARTAN 25MG [Suspect]
     Active Substance: LOSARTAN
     Indication: HYPERTENSION
     Route: 048
  5. ZINC. [Concomitant]
     Active Substance: ZINC
  6. PRESERVISION [Concomitant]
     Active Substance: MINERALS\VITAMINS

REACTIONS (5)
  - Visual acuity reduced [None]
  - Orthostatic hypotension [None]
  - Visual impairment [None]
  - Vision blurred [None]
  - Drug intolerance [None]

NARRATIVE: CASE EVENT DATE: 20200711
